FAERS Safety Report 16262574 (Version 4)
Quarter: 2020Q3

REPORT INFORMATION
  Report Type: Spontaneous
  Country: US (occurrence: US)
  Receive Date: 20190502
  Receipt Date: 20200927
  Transmission Date: 20201102
  Serious: Yes (Other)
  Sender: FDA-Public Use
  Company Number: US-SUN PHARMACEUTICAL INDUSTRIES LTD-2019R1-206797

PATIENT
  Sex: Male

DRUGS (1)
  1. ABSORICA [Suspect]
     Active Substance: ISOTRETINOIN
     Indication: PRODUCT USED FOR UNKNOWN INDICATION
     Dosage: UNK
     Route: 065
     Dates: start: 2018

REACTIONS (14)
  - Suicidal ideation [Not Recovered/Not Resolved]
  - Sleep disorder [Unknown]
  - Gastrointestinal disorder [Unknown]
  - Weight decreased [Unknown]
  - Polyuria [Unknown]
  - Dry skin [Unknown]
  - Headache [Unknown]
  - Muscle strain [Not Recovered/Not Resolved]
  - Epistaxis [Unknown]
  - Agitation [Not Recovered/Not Resolved]
  - Anger [Unknown]
  - Disturbance in attention [Not Recovered/Not Resolved]
  - Decreased appetite [Unknown]
  - Depression [Not Recovered/Not Resolved]
